FAERS Safety Report 15035689 (Version 1)
Quarter: 2018Q2

REPORT INFORMATION
  Report Type: Spontaneous
  Country: PE (occurrence: PE)
  Receive Date: 20180620
  Receipt Date: 20180620
  Transmission Date: 20180711
  Serious: Yes (Other)
  Sender: FDA-Public Use
  Company Number: PE-GLAXOSMITHKLINE-PE2018GSK105296

PATIENT
  Age: 3 Year
  Sex: Male

DRUGS (1)
  1. FLIXOTIDE 125 [Suspect]
     Active Substance: FLUTICASONE PROPIONATE
     Indication: ASTHMA
     Dosage: 2 PUFF(S), BID
     Route: 055
     Dates: start: 20180526

REACTIONS (2)
  - Cough [Recovering/Resolving]
  - Gastric infection [Recovering/Resolving]

NARRATIVE: CASE EVENT DATE: 20180610
